FAERS Safety Report 9515221 (Version 1)
Quarter: 2013Q1

REPORT INFORMATION
  Report Type: Spontaneous
  Country: US (occurrence: None)
  Receive Date: 20130305
  Receipt Date: 20130305
  Transmission Date: 20140127
  Serious: Yes (Hospitalization)
  Sender: FDA-Public Use
  Company Number: 163-21880-12121720

PATIENT
  Age: 65 Year
  Sex: Female
  Weight: 59.88 kg

DRUGS (5)
  1. REVLIMID [Suspect]
     Indication: MYELODYSPLASTIC SYNDROME
     Dosage: 5 MG, 28 IN 28 D, PO
     Route: 048
     Dates: start: 20120627, end: 20121214
  2. XANAX (ALPRAZOLAM) (UNKNOWN) [Concomitant]
  3. CELEXA (CITALOPRAM HYDROBROMIDE) (UNKNOWN) [Concomitant]
  4. FLEXERIL (CYCLOBENZAPRINE HYDROCHLORIDE) (UNKNOWN) [Concomitant]
  5. METOPROLOL (METOPROLOL) (UNKNOWN) [Concomitant]

REACTIONS (2)
  - Neutropenia [None]
  - Disease progression [None]
